FAERS Safety Report 18277845 (Version 1)
Quarter: 2020Q3

REPORT INFORMATION
  Report Type: Spontaneous
  Country: US (occurrence: US)
  Receive Date: 20200917
  Receipt Date: 20200917
  Transmission Date: 20201103
  Serious: Yes (Hospitalization)
  Sender: FDA-Public Use
  Company Number: None

PATIENT
  Sex: Male

DRUGS (12)
  1. FAMOTIDINE. [Concomitant]
     Active Substance: FAMOTIDINE
  2. PREDNISONE. [Concomitant]
     Active Substance: PREDNISONE
  3. CIPROFLOXACIN. [Concomitant]
     Active Substance: CIPROFLOXACIN
  4. SMZ?TMP [Concomitant]
     Active Substance: SULFAMETHOXAZOLE\TRIMETHOPRIM
  5. ASPIRIN. [Concomitant]
     Active Substance: ASPIRIN
  6. ACYCLOVIR. [Concomitant]
     Active Substance: ACYCLOVIR
  7. MYCOPHENOLATE [Suspect]
     Active Substance: MYCOPHENOLIC ACID
     Indication: RENAL TRANSPLANT
     Route: 048
     Dates: start: 20200828
  8. FEROSUL [Concomitant]
     Active Substance: FERROUS SULFATE
  9. VITAMIN D3 [Concomitant]
     Active Substance: CHOLECALCIFEROL
  10. TACROLIMUS. [Suspect]
     Active Substance: TACROLIMUS
     Indication: RENAL TRANSPLANT
     Route: 048
     Dates: start: 20200828
  11. NIFEDIPINE. [Concomitant]
     Active Substance: NIFEDIPINE
  12. ACETAMINOPHEN. [Concomitant]
     Active Substance: ACETAMINOPHEN

REACTIONS (1)
  - Kidney transplant rejection [None]
